FAERS Safety Report 5726910-0 (Version None)
Quarter: 2008Q2

REPORT INFORMATION
  Report Type: 
  Country: None (occurrence: None)
  Receive Date: 20080502
  Receipt Date: 20080421
  Transmission Date: 20081010
  Serious: Yes (Life-Threatening)
  Sender: FDA-Public Use
  Company Number: GB-PFIZER INC-2008036365

PATIENT
  Age: 30 Year
  Sex: Male

DRUGS (1)
  1. SOMATROPIN [Suspect]
     Route: 058
     Dates: start: 19860101, end: 19950101

REACTIONS (1)
  - TESTIS CANCER [None]
